FAERS Safety Report 6936105-0 (Version None)
Quarter: 2010Q3

REPORT INFORMATION
  Report Type: 
  Country: None (occurrence: None)
  Receive Date: 20100819
  Receipt Date: 20100819
  Transmission Date: 20110219
  Serious: Yes (Hospitalization, Other)
  Sender: FDA-Public Use
  Company Number: None

PATIENT
  Sex: Female
  Weight: 64.8644 kg

DRUGS (3)
  1. YASMIN [Suspect]
     Indication: HAEMORRHAGE
     Dosage: 1 PILL DAILY PO
     Route: 048
     Dates: start: 20010101, end: 20100101
  2. YASMIN [Suspect]
     Indication: PAIN
     Dosage: 1 PILL DAILY PO
     Route: 048
     Dates: start: 20010101, end: 20100101
  3. YAZ [Suspect]
     Indication: CONTRACEPTION
     Dosage: 1 PILL DAILY PO
     Route: 048

REACTIONS (7)
  - CHEST PAIN [None]
  - CHOLELITHIASIS [None]
  - DIARRHOEA [None]
  - DRUG EXPOSURE DURING PREGNANCY [None]
  - HEPATIC FAILURE [None]
  - NAUSEA [None]
  - PREGNANCY [None]
